FAERS Safety Report 24723266 (Version 2)
Quarter: 2024Q4

REPORT INFORMATION
  Report Type: Spontaneous
  Country: CA (occurrence: CA)
  Receive Date: 20241211
  Receipt Date: 20241216
  Transmission Date: 20250115
  Serious: Yes (Other)
  Sender: PFIZER
  Company Number: CA-PFIZER INC-202300455260

PATIENT
  Age: 63 Year
  Sex: Female

DRUGS (20)
  1. SULFASALAZINE [Suspect]
     Active Substance: SULFASALAZINE
     Indication: Rheumatoid arthritis
     Dosage: 1000 MG, 2X/DAY
     Route: 048
  2. SULFASALAZINE [Suspect]
     Active Substance: SULFASALAZINE
     Dosage: 2000 MG, 2X/DAY
     Route: 048
     Dates: start: 2016, end: 202210
  3. AMITRIPTYLINE [Concomitant]
     Active Substance: AMITRIPTYLINE
     Dosage: 25 MG, QHS AS NEED
     Route: 048
  4. ATOVAQUONE [Concomitant]
     Active Substance: ATOVAQUONE
     Indication: Pneumocystis jirovecii pneumonia
     Dosage: UNK
  5. CUVITRU [Concomitant]
     Active Substance: HUMAN IMMUNOGLOBULIN G
     Dosage: 1 DF
     Dates: start: 20210801
  6. CUVITRU [Concomitant]
     Active Substance: HUMAN IMMUNOGLOBULIN G
     Dosage: UNK,  4GM/WEEK
  7. DOMPERIDONE [Concomitant]
     Active Substance: DOMPERIDONE
     Dosage: 10 MG, DAILY,  (HER GL SPECIALIST HAS ADVISED NOT TO INCREASE THIS DOSE)
     Route: 048
  8. MORPHINE [Concomitant]
     Active Substance: MORPHINE
     Indication: Dyspnoea
     Dosage: UNK
  9. NAPROXEN [Concomitant]
     Active Substance: NAPROXEN
     Dosage: UNK
  10. OXYGEN [Concomitant]
     Active Substance: OXYGEN
     Dosage: 3 L, NC DURING EXERTION
  11. PLAQUENIL [Concomitant]
     Active Substance: HYDROXYCHLOROQUINE SULFATE
     Indication: Rheumatoid arthritis
     Dosage: 1 DF
     Dates: start: 2016
  12. PLAQUENIL [Concomitant]
     Active Substance: HYDROXYCHLOROQUINE SULFATE
     Dosage: 200 MG, PO ALT WITH 400MG EVERY OTHER DAY
     Route: 048
  13. PREDNISONE [Concomitant]
     Active Substance: PREDNISONE
     Indication: Rheumatoid arthritis
     Dosage: 20 MG, DAILY (WILL TAPER DOWN TO 15MG OD SOON)
     Route: 048
     Dates: start: 2013
  14. PROLIA [Concomitant]
     Active Substance: DENOSUMAB
     Dosage: 1 DF (REFILLED THROUGH GP
  15. RITUXIMAB [Concomitant]
     Active Substance: RITUXIMAB
     Indication: Rheumatoid arthritis
     Dosage: 1000 MG, DAY 1 AND DAY 15
     Route: 042
     Dates: start: 20230124, end: 20230207
  16. RITUXIMAB [Concomitant]
     Active Substance: RITUXIMAB
     Dosage: 1000 MG, DAY 1 AND DAY 15
     Route: 042
     Dates: start: 20230811, end: 20230823
  17. RITUXIMAB [Concomitant]
     Active Substance: RITUXIMAB
     Dosage: 1000 MG, DAY 1 AND DAY 15
     Route: 042
     Dates: start: 20240126, end: 20240213
  18. RITUXIMAB [Concomitant]
     Active Substance: RITUXIMAB
     Dosage: 1000 MG, DAY 1 AND DAY 15
     Route: 042
     Dates: start: 20240726
  19. PANTOPRAZOLE MAGNESIUM [Concomitant]
     Active Substance: PANTOPRAZOLE MAGNESIUM
     Dosage: 40 MG, DAILY (40MG PO DAILY, (FROM GP REFILLED))
     Route: 048
  20. CHOLECALCIFEROL [Concomitant]
     Active Substance: CHOLECALCIFEROL
     Dosage: 50000 IU, EVERY 4 WEEKS
     Route: 048

REACTIONS (2)
  - Cytopenia [Unknown]
  - Anaemia [Recovered/Resolved]
